FAERS Safety Report 7525595-0 (Version None)
Quarter: 2011Q2

REPORT INFORMATION
  Report Type: 
  Country: None (occurrence: None)
  Receive Date: 20110606
  Receipt Date: 20110523
  Transmission Date: 20111010
  Serious: Yes (Other)
  Sender: FDA-Public Use
  Company Number: PHHY2011US44553

PATIENT
  Age: 72 Year
  Sex: Female

DRUGS (7)
  1. COREG [Concomitant]
  2. LEVOXYL [Concomitant]
  3. NEXIUM [Concomitant]
  4. CRESTOR [Concomitant]
  5. FORTEO [Concomitant]
  6. RECLAST [Suspect]
     Dosage: 5 MG/100 ML, ONCE YEARLY
     Route: 042
     Dates: start: 20110518
  7. FOSAMAX [Suspect]

REACTIONS (11)
  - PAIN [None]
  - ARTHRALGIA [None]
  - FALL [None]
  - ANKLE FRACTURE [None]
  - FEELING ABNORMAL [None]
  - BALANCE DISORDER [None]
  - MUSCULOSKELETAL PAIN [None]
  - FIBULA FRACTURE [None]
  - MUSCULAR WEAKNESS [None]
  - HYPOAESTHESIA [None]
  - OESOPHAGEAL DISORDER [None]
